FAERS Safety Report 13829251 (Version 1)
Quarter: 2017Q3

REPORT INFORMATION
  Report Type: Spontaneous
  Country: US (occurrence: US)
  Receive Date: 20170802
  Receipt Date: 20170802
  Transmission Date: 20171127
  Serious: Yes (Hospitalization)
  Sender: FDA-Public Use
  Company Number: None

PATIENT
  Age: 81 Year
  Sex: Male
  Weight: 199.6 kg

DRUGS (1)
  1. SULFAMETHOXAZOLE/TRIMETHOPRIM [Suspect]
     Active Substance: SULFAMETHOXAZOLE\TRIMETHOPRIM
     Indication: URINARY TRACT INFECTION
     Dosage: DOSE - 800/160 MG
     Route: 048
     Dates: start: 20161212, end: 20161212

REACTIONS (3)
  - Blood urea increased [None]
  - Blood creatine increased [None]
  - Acute kidney injury [None]

NARRATIVE: CASE EVENT DATE: 20161216
